FAERS Safety Report 8195393-6 (Version None)
Quarter: 2012Q1

REPORT INFORMATION
  Report Type: 
  Country: None (occurrence: None)
  Receive Date: 20120308
  Receipt Date: 20120302
  Transmission Date: 20120608
  Serious: Yes (Hospitalization, Other)
  Sender: FDA-Public Use
  Company Number: US-ABBOTT-12P-163-0911717-00

PATIENT
  Sex: Female
  Weight: 69.916 kg

DRUGS (1)
  1. LUPRON DEPOT [Suspect]
     Indication: UTERINE LEIOMYOMA
     Route: 030
     Dates: start: 20111222, end: 20120201

REACTIONS (2)
  - HYSTERECTOMY [None]
  - UTERINE HAEMORRHAGE [None]
